FAERS Safety Report 4279029-2 (Version None)
Quarter: 2004Q1

REPORT INFORMATION
  Report Type: 
  Country: None (occurrence: None)
  Receive Date: 20040122
  Receipt Date: 20040112
  Transmission Date: 20041129
  Serious: Yes (Other)
  Sender: FDA-Public Use
  Company Number: 2004002224

PATIENT
  Age: 61 Year
  Sex: Male

DRUGS (5)
  1. NORVASC [Suspect]
     Indication: HYPERTENSION
  2. TRIAMTERENE (TRIAMTERENE) [Suspect]
     Indication: ILL-DEFINED DISORDER
  3. CARDIAC THERAPY [Concomitant]
  4. ATORVASTATIN (ATORVASTATIN) [Concomitant]
  5. ANTIHYPERTENSIVES [Concomitant]

REACTIONS (4)
  - BLOOD CALCIUM INCREASED [None]
  - DYSPLASIA [None]
  - GUM NEOPLASM MALIGNANT STAGE UNSPECIFIED [None]
  - SQUAMOUS CELL CARCINOMA [None]
